FAERS Safety Report 9962417 (Version 1)
Quarter: 2014Q1

REPORT INFORMATION
  Report Type: Report from Study
  Country: US (occurrence: US)
  Receive Date: 20140305
  Receipt Date: 20140305
  Transmission Date: 20141002
  Serious: No
  Sender: FDA-Public Use
  Company Number: US-ABBVIE-13P-163-1116304-00

PATIENT
  Sex: Male

DRUGS (1)
  1. HUMIRA [Suspect]
     Indication: PRODUCT USED FOR UNKNOWN INDICATION
     Route: 058
     Dates: start: 20130326

REACTIONS (5)
  - Joint stiffness [Unknown]
  - Paraesthesia [Unknown]
  - Rash [Unknown]
  - Limb injury [Unknown]
  - Arthralgia [Unknown]
